FAERS Safety Report 13957598 (Version 4)
Quarter: 2018Q2

REPORT INFORMATION
  Report Type: Report from Study
  Country: None (occurrence: US)
  Receive Date: 20170912
  Receipt Date: 20180611
  Transmission Date: 20180711
  Serious: Yes (Other)
  Sender: FDA-Public Use
  Company Number: US-ABBVIE-17K-163-1917621-00

PATIENT
  Age: 30 Year
  Sex: Male

DRUGS (4)
  1. HUMIRA [Suspect]
     Active Substance: ADALIMUMAB
     Route: 058
  2. HUMIRA [Suspect]
     Active Substance: ADALIMUMAB
     Route: 058
  3. HUMIRA [Suspect]
     Active Substance: ADALIMUMAB
     Route: 058
  4. HUMIRA [Suspect]
     Active Substance: ADALIMUMAB
     Indication: PSORIATIC ARTHROPATHY
     Route: 058

REACTIONS (9)
  - Postoperative adhesion [Recovering/Resolving]
  - Tendon rupture [Unknown]
  - Incision site pain [Not Recovered/Not Resolved]
  - Peptic ulcer [Unknown]
  - Inguinal hernia [Unknown]
  - Peripheral nerve operation [Recovering/Resolving]
  - Abdominal pain [Recovering/Resolving]
  - Incision site swelling [Not Recovered/Not Resolved]
  - Arthralgia [Not Recovered/Not Resolved]

NARRATIVE: CASE EVENT DATE: 2017
